FAERS Safety Report 7808017 (Version 7)
Quarter: 2012Q4

REPORT INFORMATION
  Report Type: Report from Study
  Country: NL (occurrence: NL)
  Receive Date: 20110210
  Receipt Date: 20121227
  Transmission Date: 20130627
  Serious: Yes (Hospitalization)
  Sender: FDA-Public Use
  Company Number: PHHO2011NL02163

PATIENT
  Age: 4 Year
  Sex: Female
  Weight: 17.8 kg

DRUGS (7)
  1. ACZ885 [Suspect]
     Indication: JUVENILE ARTHRITIS
     Dosage: UNK, NO TREATMENT
     Route: 058
     Dates: start: 20100406
  2. ACZ885 [Suspect]
     Dosage: UNK
     Route: 058
     Dates: start: 20110113
  3. ACZ885 [Suspect]
     Indication: JUVENILE ARTHRITIS
     Dosage: 70 mg, UNK
     Route: 058
     Dates: start: 20100209
  4. ACZ885 [Suspect]
     Dosage: UNK
     Route: 058
     Dates: start: 20100309
  5. INDOMETHACIN [Concomitant]
     Indication: JUVENILE ARTHRITIS
     Dates: start: 200812
  6. METHOTREXATE [Concomitant]
     Indication: JUVENILE ARTHRITIS
     Dates: start: 200812
  7. FOLIC ACID [Concomitant]
     Dates: start: 200812

REACTIONS (2)
  - Lower respiratory tract infection [Recovered/Resolved]
  - Drug ineffective [Recovered/Resolved]
